FAERS Safety Report 17477913 (Version 2)
Quarter: 2020Q2

REPORT INFORMATION
  Report Type: Spontaneous
  Country: DK (occurrence: DK)
  Receive Date: 20200228
  Receipt Date: 20200401
  Transmission Date: 20200713
  Serious: Yes (Other)
  Sender: FDA-Public Use
  Company Number: DK-B.I. PHARMACEUTICALS,INC./RIDGEFIELD-2020-12-010414

PATIENT
  Age: 78 Year
  Sex: Female

DRUGS (1)
  1. JARDIANCE [Suspect]
     Active Substance: EMPAGLIFLOZIN
     Indication: TYPE 2 DIABETES MELLITUS
     Route: 048
     Dates: start: 20191214

REACTIONS (6)
  - Cough [Unknown]
  - Genital pain [Unknown]
  - Genital haemorrhage [Unknown]
  - Oropharyngeal pain [Unknown]
  - Dysphonia [Unknown]
  - Pain [Unknown]

NARRATIVE: CASE EVENT DATE: 201912
